FAERS Safety Report 22202299 (Version 2)
Quarter: 2023Q2

REPORT INFORMATION
  Report Type: Report from Study
  Country: JP (occurrence: None)
  Receive Date: 20230412
  Receipt Date: 20230516
  Transmission Date: 20230722
  Serious: Yes (Death)
  Sender: FDA-Public Use
  Company Number: 2023A083423

PATIENT
  Age: 83 Year
  Sex: Male
  Weight: 60 kg

DRUGS (3)
  1. ONDEXXYA [Suspect]
     Active Substance: ANDEXANET ALFA
     Indication: Gastrointestinal haemorrhage
     Dosage: 400 MG + 480 MG
     Route: 042
     Dates: start: 20230126
  2. OMEPRAZOLE [Concomitant]
     Active Substance: OMEPRAZOLE
     Indication: Gastric ulcer
     Route: 065
     Dates: start: 20230126, end: 20230201
  3. PIPERACILLIN SODIUM\TAZOBACTAM SODIUM [Concomitant]
     Active Substance: PIPERACILLIN SODIUM\TAZOBACTAM SODIUM
     Indication: Pneumonia
     Route: 065
     Dates: start: 20230126, end: 20230130

REACTIONS (2)
  - Cerebral infarction [Fatal]
  - Adverse event [Unknown]

NARRATIVE: CASE EVENT DATE: 20230127
